FAERS Safety Report 8297771 (Version 2)
Quarter: 2013Q4

REPORT INFORMATION
  Report Type: Spontaneous
  Country: US (occurrence: US)
  Receive Date: 20111219
  Receipt Date: 20131203
  Transmission Date: 20140711
  Serious: No
  Sender: FDA-Public Use
  Company Number: US-JNJFOC-20111205372

PATIENT
  Age: 78 Year
  Sex: Female
  Weight: 53.98 kg

DRUGS (1)
  1. SANDOZ FENTANYL TRANSDERMAL SYSTEM [Suspect]
     Indication: BACK PAIN
     Route: 062
     Dates: start: 201106

REACTIONS (2)
  - Poor quality drug administered [Recovered/Resolved]
  - Drug ineffective [Not Recovered/Not Resolved]
